FAERS Safety Report 7240613-5 (Version None)
Quarter: 2011Q1

REPORT INFORMATION
  Report Type: 
  Country: None (occurrence: None)
  Receive Date: 20110124
  Receipt Date: 20110114
  Transmission Date: 20110831
  Serious: Yes (Hospitalization)
  Sender: FDA-Public Use
  Company Number: GB-MILLENNIUM PHARMACEUTICALS, INC.-2011-00190

PATIENT

DRUGS (5)
  1. VELCADE [Suspect]
     Indication: MANTLE CELL LYMPHOMA
  2. CYCLOPHOSPHAMIDE [Suspect]
     Indication: MANTLE CELL LYMPHOMA
  3. DOXORUBICIN [Suspect]
     Indication: MANTLE CELL LYMPHOMA
  4. VINCRISTINE [Suspect]
     Indication: MANTLE CELL LYMPHOMA
  5. PREDNISONE [Suspect]
     Indication: MANTLE CELL LYMPHOMA

REACTIONS (2)
  - PYREXIA [None]
  - INFECTION [None]
